FAERS Safety Report 15241608 (Version 2)
Quarter: 2019Q4

REPORT INFORMATION
  Report Type: Spontaneous
  Country: FR (occurrence: FR)
  Receive Date: 20180805
  Receipt Date: 20191212
  Transmission Date: 20200122
  Serious: Yes (Hospitalization)
  Sender: FDA-Public Use
  Company Number: PHHY2018FR061758

PATIENT
  Age: 51 Year
  Sex: Male
  Weight: 60 kg

DRUGS (3)
  1. CERUBIDINE [Suspect]
     Active Substance: DAUNORUBICIN HYDROCHLORIDE
     Indication: LEUKAEMIA
     Dosage: 155 MG, UNK(90MG/M2 J1 J3 J5)
     Route: 041
     Dates: start: 20171230, end: 20180103
  2. CYTARABINE EBEWE [Suspect]
     Active Substance: CYTARABINE
     Indication: LEUKAEMIA
     Dosage: UNK
     Route: 041
     Dates: start: 201712
  3. RYDAPT [Suspect]
     Active Substance: MIDOSTAURIN
     Indication: LEUKAEMIA
     Dosage: 100 MG, QD(15 JOURS/CURE)
     Route: 048
     Dates: start: 20180124

REACTIONS (2)
  - Right ventricular ejection fraction decreased [Unknown]
  - Cardiac failure [Unknown]

NARRATIVE: CASE EVENT DATE: 201804
